FAERS Safety Report 5712535-X (Version None)
Quarter: 2008Q2

REPORT INFORMATION
  Report Type: 
  Country: None (occurrence: None)
  Receive Date: 20080418
  Receipt Date: 20080409
  Transmission Date: 20081010
  Serious: Yes (Other)
  Sender: FDA-Public Use
  Company Number: CHPA2008US06376

PATIENT
  Age: 79 Year
  Sex: Male

DRUGS (2)
  1. GAS-XEXTRA STRENGTH SOFTGELS [Suspect]
     Indication: RECTAL HAEMORRHAGE
     Dosage: 125 MG, PRN, ORAL
     Route: 048
  2. DRUG THERAPY NOS(DRUG THERAPY NOS) SUPPOSITORY [Suspect]
     Indication: BOWEL MOVEMENT IRREGULARITY
     Dosage: RECTAL
     Route: 054

REACTIONS (3)
  - BRAIN OPERATION [None]
  - COLON CANCER [None]
  - SURGERY [None]
